FAERS Safety Report 21105191 (Version 4)
Quarter: 2022Q3

REPORT INFORMATION
  Report Type: Spontaneous
  Country: US (occurrence: US)
  Receive Date: 20220720
  Receipt Date: 20220921
  Transmission Date: 20221027
  Serious: No
  Sender: FDA-Public Use
  Company Number: US-PFIZER INC-202200935447

PATIENT
  Age: 62 Year
  Sex: Male
  Weight: 115.67 kg

DRUGS (1)
  1. GENOTROPIN [Suspect]
     Active Substance: SOMATROPIN
     Indication: Empty sella syndrome
     Dosage: UNK
     Route: 058

REACTIONS (3)
  - Off label use [Unknown]
  - Device information output issue [Unknown]
  - Device power source issue [Unknown]
